FAERS Safety Report 6191855-1 (Version None)
Quarter: 2009Q2

REPORT INFORMATION
  Report Type: 
  Country: None (occurrence: None)
  Receive Date: 20090515
  Receipt Date: 20090512
  Transmission Date: 20091009
  Serious: Yes (Disabling)
  Sender: FDA-Public Use
  Company Number: JP-ELI_LILLY_AND_COMPANY-JP200904007025

PATIENT
  Sex: Male

DRUGS (2)
  1. GEMZAR [Suspect]
     Indication: GALLBLADDER CANCER
     Dosage: 1000 MG/M2, OTHER
     Route: 042
     Dates: start: 20090409
  2. TS 1 /JPN/ [Concomitant]
     Indication: GALLBLADDER CANCER
     Dosage: 60 MG/M2, UNKNOWN
     Route: 048
     Dates: start: 20090409

REACTIONS (1)
  - HEPATIC ENCEPHALOPATHY [None]
